FAERS Safety Report 4442001-3 (Version None)
Quarter: 2004Q3

REPORT INFORMATION
  Report Type: 
  Country: None (occurrence: None)
  Receive Date: 20040907
  Receipt Date: 20040825
  Transmission Date: 20050211
  Serious: Yes (Life-Threatening, Hospitalization)
  Sender: FDA-Public Use
  Company Number: AU-BRISTOL-MYERS SQUIBB COMPANY-12683538

PATIENT
  Sex: Male

DRUGS (1)
  1. TAXOL [Suspect]
     Route: 042
     Dates: start: 20040825, end: 20040825

REACTIONS (1)
  - CARDIAC FAILURE CONGESTIVE [None]
